FAERS Safety Report 6557148-5 (Version None)
Quarter: 2010Q1

REPORT INFORMATION
  Report Type: 
  Country: None (occurrence: None)
  Receive Date: 20100126
  Receipt Date: 20100111
  Transmission Date: 20100710
  Serious: Yes (Other)
  Sender: FDA-Public Use
  Company Number: DSA_42319_2010

PATIENT
  Sex: Female

DRUGS (6)
  1. WELLBUTRIN XL [Suspect]
     Indication: DEPRESSION
     Dosage: DF, 150 MG QD
     Dates: start: 20091208, end: 20100105
  2. WELLBUTRIN XL [Suspect]
     Indication: DEPRESSION
     Dosage: DF, 150 MG QD
     Dates: start: 20100107
  3. CITALOPRAM HYDROBROMIDE [Suspect]
     Indication: DRUG USE FOR UNKNOWN INDICATION
     Dosage: DF
  4. STRATTERA [Suspect]
     Indication: DRUG USE FOR UNKNOWN INDICATION
     Dosage: DF
  5. ATENOLOL [Concomitant]
  6. LORAZEPAM [Concomitant]

REACTIONS (8)
  - BLOOD PRESSURE DECREASED [None]
  - DEPRESSED MOOD [None]
  - FLUSHING [None]
  - HYPERTENSION [None]
  - LOSS OF EMPLOYMENT [None]
  - NAUSEA [None]
  - PANIC ATTACK [None]
  - STRESS [None]
